FAERS Safety Report 13871713 (Version 5)
Quarter: 2018Q1

REPORT INFORMATION
  Report Type: Spontaneous
  Country: CH (occurrence: CH)
  Receive Date: 20170816
  Receipt Date: 20180330
  Transmission Date: 20180508
  Serious: Yes (Hospitalization)
  Sender: FDA-Public Use
  Company Number: CH-JNJFOC-20170809389

PATIENT
  Age: 77 Year
  Sex: Female

DRUGS (9)
  1. COVERSUM N COMBI [Concomitant]
     Active Substance: INDAPAMIDE\PERINDOPRIL ARGININE
     Route: 065
  2. TRAMAL [Interacting]
     Active Substance: TRAMADOL
     Indication: BACK PAIN
     Route: 048
     Dates: start: 201707, end: 20170709
  3. TRAMAL [Interacting]
     Active Substance: TRAMADOL
     Indication: AGITATION
     Route: 048
     Dates: start: 201707, end: 20170709
  4. ZYPREXA [Interacting]
     Active Substance: OLANZAPINE
     Indication: AGITATION
     Route: 048
     Dates: start: 20170709, end: 20170709
  5. NEXIUM [Concomitant]
     Active Substance: ESOMEPRAZOLE MAGNESIUM
     Route: 065
  6. HALDOL [Suspect]
     Active Substance: HALOPERIDOL
     Indication: AGITATION
     Route: 048
     Dates: start: 20170708, end: 20170708
  7. TEMESTA (LORAZEPAM) [Interacting]
     Active Substance: LORAZEPAM
     Indication: AGITATION
     Route: 048
     Dates: start: 20170707, end: 20170711
  8. CLOMETHIAZOLE [Interacting]
     Active Substance: CLOMETHIAZOLE
     Indication: AGITATION
     Route: 048
     Dates: start: 20170708, end: 20170709
  9. BRINTELLIX [Interacting]
     Active Substance: VORTIOXETINE HYDROBROMIDE
     Indication: PRODUCT USED FOR UNKNOWN INDICATION
     Route: 048
     Dates: end: 20170708

REACTIONS (8)
  - Confusional state [Recovered/Resolved]
  - Tachycardia [Recovered/Resolved]
  - Hyponatraemia [Recovered/Resolved]
  - Agitation [Recovered/Resolved]
  - Serotonin syndrome [Recovered/Resolved]
  - Urinary retention [Recovered/Resolved]
  - Fall [Recovered/Resolved]
  - Drug interaction [Recovering/Resolving]

NARRATIVE: CASE EVENT DATE: 20170708
